FAERS Safety Report 4514034-X (Version None)
Quarter: 2004Q4

REPORT INFORMATION
  Report Type: 
  Country: None (occurrence: None)
  Receive Date: 20041124
  Receipt Date: 20041105
  Transmission Date: 20050328
  Serious: Yes (Hospitalization)
  Sender: FDA-Public Use
  Company Number: USA031049008

PATIENT
  Age: 73 Year
  Sex: Male
  Weight: 77 kg

DRUGS (3)
  1. FORTEO [Suspect]
     Indication: OSTEOPOROSIS
     Dosage: 20 UG/1 DAY
     Dates: start: 20031002
  2. CARITASONE [Concomitant]
  3. MIRALAZ (MACROGOL) [Concomitant]

REACTIONS (16)
  - BACK PAIN [None]
  - CARDIAC FAILURE CONGESTIVE [None]
  - CARDIOMYOPATHY [None]
  - CELLULITIS [None]
  - CHILLS [None]
  - ERYTHEMA [None]
  - FALL [None]
  - MEDICAL DEVICE COMPLICATION [None]
  - OEDEMA PERIPHERAL [None]
  - OVERDOSE [None]
  - PNEUMONIA [None]
  - PULMONARY OEDEMA [None]
  - PYREXIA [None]
  - SKIN LACERATION [None]
  - SKIN WARM [None]
  - VOMITING [None]
